FAERS Safety Report 21194935 (Version 1)
Quarter: 2022Q3

REPORT INFORMATION
  Report Type: Spontaneous
  Country: FR (occurrence: FR)
  Receive Date: 20220810
  Receipt Date: 20220810
  Transmission Date: 20221026
  Serious: Yes (Death, Hospitalization, Other)
  Sender: FDA-Public Use
  Company Number: FR-VALIDUS PHARMACEUTICALS LLC-FR-VDP-2022-015660

PATIENT

DRUGS (17)
  1. CEFOTAXIME SODIUM [Suspect]
     Active Substance: CEFOTAXIME SODIUM
     Indication: Arthritis bacterial
     Dosage: 2 GRAM, TID
     Route: 065
     Dates: start: 20120601, end: 20120607
  2. CEFOTAXIME SODIUM [Suspect]
     Active Substance: CEFOTAXIME SODIUM
     Dosage: 2 GRAM, QD
     Route: 065
     Dates: start: 20120625, end: 20120627
  3. CLINDAMYCIN HYDROCHLORIDE [Suspect]
     Active Substance: CLINDAMYCIN HYDROCHLORIDE
     Indication: Arthritis bacterial
     Dosage: 600 MILLIGRAM, TID
     Route: 065
     Dates: start: 20120625
  4. PIPERACILLIN [Suspect]
     Active Substance: PIPERACILLIN
     Indication: Arthritis bacterial
     Dosage: 8 GRAM, QD
     Route: 065
     Dates: start: 20120629
  5. LEVOFLOXACIN [Suspect]
     Active Substance: LEVOFLOXACIN
     Indication: Arthritis bacterial
     Dosage: 250 MILLIGRAM, BID
     Route: 065
     Dates: start: 20120610, end: 20120629
  6. LEVOFLOXACIN [Suspect]
     Active Substance: LEVOFLOXACIN
     Indication: Arthritis bacterial
     Dosage: 250 MILLIGRAM, BID
     Route: 065
     Dates: start: 20120607, end: 20120608
  7. GENTAMICIN SULFATE [Suspect]
     Active Substance: GENTAMICIN SULFATE
     Indication: Arthritis bacterial
     Dosage: 300 MILLIGRAM, QD
     Route: 065
     Dates: start: 20120601, end: 20120604
  8. RIFAMPIN [Suspect]
     Active Substance: RIFAMPIN
     Indication: Arthritis bacterial
     Dosage: 600 MILLIGRAM, BID, POWDER FOR CONCENTRATE FOR SOLUTION FOR INJECTION/INFUSION
     Route: 065
     Dates: start: 20120604, end: 20120610
  9. FERROUS SULFATE [Concomitant]
     Active Substance: FERROUS SULFATE
     Indication: Product used for unknown indication
     Dosage: UNK
     Route: 065
  10. RABEPRAZOLE SODIUM [Concomitant]
     Active Substance: RABEPRAZOLE SODIUM
     Indication: Product used for unknown indication
     Dosage: UNK
     Route: 065
  11. FLUINDIONE [Concomitant]
     Active Substance: FLUINDIONE
     Indication: Product used for unknown indication
     Dosage: UNK
     Route: 065
  12. NAFRONYL [Concomitant]
     Active Substance: NAFRONYL
     Indication: Product used for unknown indication
     Dosage: UNK
     Route: 065
  13. LASIX [Concomitant]
     Active Substance: FUROSEMIDE
     Indication: Product used for unknown indication
     Dosage: UNK
     Route: 065
  14. PENTOXIFYLLINE [Concomitant]
     Active Substance: PENTOXIFYLLINE
     Indication: Product used for unknown indication
     Dosage: UNK
     Route: 065
  15. PERINDOPRIL [Concomitant]
     Active Substance: PERINDOPRIL
     Indication: Product used for unknown indication
     Dosage: UNK
     Route: 065
  16. POTASSIUM CHLORIDE [Concomitant]
     Active Substance: POTASSIUM CHLORIDE
     Indication: Product used for unknown indication
     Dosage: UNK
     Route: 065
  17. NEBIVOLOL [Concomitant]
     Active Substance: NEBIVOLOL
     Indication: Product used for unknown indication
     Dosage: UNK
     Route: 065

REACTIONS (4)
  - Hyperkalaemia [Fatal]
  - Acute kidney injury [Fatal]
  - Tubulointerstitial nephritis [Fatal]
  - Oliguria [Fatal]

NARRATIVE: CASE EVENT DATE: 20120608
